FAERS Safety Report 4281481-3 (Version None)
Quarter: 2004Q1

REPORT INFORMATION
  Report Type: 
  Country: None (occurrence: None)
  Receive Date: 20040120
  Receipt Date: 20031219
  Transmission Date: 20041129
  Serious: No
  Sender: FDA-Public Use
  Company Number: 2003-12-1287

PATIENT
  Sex: Female

DRUGS (1)
  1. CLARINEX [Suspect]
     Dosage: UNKNOWN ORAL
     Route: 048
     Dates: start: 20031001

REACTIONS (1)
  - TINNITUS [None]
